FAERS Safety Report 6733120-7 (Version None)
Quarter: 2010Q2

REPORT INFORMATION
  Report Type: 
  Country: None (occurrence: None)
  Receive Date: 20100520
  Receipt Date: 20100510
  Transmission Date: 20101027
  Serious: Yes (Other)
  Sender: FDA-Public Use
  Company Number: AU-ABBOTT-10P-008-0643148-00

PATIENT
  Age: 67 Year
  Sex: Female

DRUGS (9)
  1. LIPIDIIL [Suspect]
     Indication: DRUG USE FOR UNKNOWN INDICATION
     Route: 048
     Dates: start: 20091001
  2. AVAPRO [Concomitant]
     Indication: DRUG USE FOR UNKNOWN INDICATION
     Dosage: 300/ 12.5 MG
  3. ASPIRIN [Concomitant]
     Indication: DRUG USE FOR UNKNOWN INDICATION
  4. CRESTOR [Concomitant]
     Indication: DRUG USE FOR UNKNOWN INDICATION
  5. DIABEX XR [Concomitant]
     Indication: DRUG USE FOR UNKNOWN INDICATION
  6. PHYSIOTENS [Concomitant]
     Indication: DRUG USE FOR UNKNOWN INDICATION
  7. ZOLOFT [Concomitant]
     Indication: DRUG USE FOR UNKNOWN INDICATION
  8. FELODUR [Concomitant]
     Indication: DRUG USE FOR UNKNOWN INDICATION
  9. TENORMIN [Concomitant]
     Indication: DRUG USE FOR UNKNOWN INDICATION

REACTIONS (1)
  - RENAL IMPAIRMENT [None]
